FAERS Safety Report 17415112 (Version 1)
Quarter: 2020Q1

REPORT INFORMATION
  Report Type: Report from Study
  Country: BR (occurrence: BR)
  Receive Date: 20200213
  Receipt Date: 20200213
  Transmission Date: 20200409
  Serious: Yes (Hospitalization, Other)
  Sender: FDA-Public Use
  Company Number: BR-UCBSA-2020005163

PATIENT
  Age: 24 Year
  Sex: Female
  Weight: 85 kg

DRUGS (6)
  1. IMOSEC [Concomitant]
     Active Substance: LOPERAMIDE
     Indication: PANCREATITIS
     Dosage: 4 DOSAGE FORM, ONCE DAILY (QD)
     Route: 048
     Dates: start: 2017
  2. CERTOLIZUMAB PEGOL RA [Suspect]
     Active Substance: CERTOLIZUMAB PEGOL
     Indication: RHEUMATOID ARTHRITIS
     Dosage: 400 MILLIGRAM, EV 15 DAYS
     Route: 058
     Dates: start: 201907
  3. CREON [Concomitant]
     Active Substance: PANCRELIPASE AMYLASE\PANCRELIPASE LIPASE\PANCRELIPASE PROTEASE
     Indication: PANCREATITIS
     Dosage: 4 DOSAGE FORM, UNK
     Route: 048
     Dates: start: 2017
  4. QUESTRAN [Concomitant]
     Active Substance: CHOLESTYRAMINE
     Indication: PANCREATITIS
     Dosage: 1 DOSAGE FORM, ONCE DAILY (QD)
     Route: 048
     Dates: start: 2017
  5. VITAMIN D [VITAMIN D NOS] [Concomitant]
     Active Substance: VITAMIN D NOS
     Indication: PANCREATITIS
     Dosage: 50.000 INTERNATIONAL UNIT, WEEKLY (QW)
     Route: 048
     Dates: start: 2017
  6. TRIOFLAM [Concomitant]
     Indication: PANCREATITIS
     Dosage: 4 DOSAGE FORM, ONCE DAILY (QD)
     Route: 048
     Dates: start: 2017

REACTIONS (2)
  - Nodular melanoma [Recovered/Resolved]
  - Lung disorder [Not Recovered/Not Resolved]

NARRATIVE: CASE EVENT DATE: 201909
